FAERS Safety Report 9997937 (Version 1)
Quarter: 2014Q1

REPORT INFORMATION
  Report Type: Spontaneous
  Country: US (occurrence: US)
  Receive Date: 20140311
  Receipt Date: 20140311
  Transmission Date: 20141002
  Serious: No
  Sender: FDA-Public Use
  Company Number: US-ASTRAZENECA-2014SE12980

PATIENT
  Age: 15 Year
  Sex: Male
  Weight: 71.2 kg

DRUGS (5)
  1. NEXIUM [Suspect]
     Indication: EOSINOPHILIC OESOPHAGITIS
     Dosage: UNKNOWN DAILY
     Route: 048
     Dates: start: 20140120, end: 20140220
  2. NEXIUM [Suspect]
     Indication: GASTRIC DISORDER
     Dosage: UNKNOWN DAILY
     Route: 048
     Dates: start: 20140120, end: 20140220
  3. FLOVENT [Concomitant]
     Indication: EOSINOPHILIC OESOPHAGITIS
     Route: 048
     Dates: start: 20140120
  4. REMERON [Concomitant]
     Indication: AUTISM
     Dates: start: 201302
  5. REMERON [Concomitant]
     Indication: AFFECTIVE DISORDER
     Dates: start: 201302

REACTIONS (4)
  - Affective disorder [Not Recovered/Not Resolved]
  - Depression [Not Recovered/Not Resolved]
  - Abdominal discomfort [Unknown]
  - Intentional drug misuse [Unknown]
